FAERS Safety Report 6521783-0 (Version None)
Quarter: 2009Q4

REPORT INFORMATION
  Report Type: 
  Country: None (occurrence: None)
  Receive Date: 20091214
  Receipt Date: 20090811
  Transmission Date: 20100525
  Serious: Yes (Other)
  Sender: FDA-Public Use
  Company Number: 649642

PATIENT
  Age: 35 Year
  Sex: Male

DRUGS (1)
  1. PEGASYS [Suspect]
     Indication: HEPATITIS B
     Dosage: 180 UG SUBCUTANEOUS
     Route: 058
     Dates: start: 20080101

REACTIONS (1)
  - NEUTROPHIL COUNT ABNORMAL [None]
